FAERS Safety Report 10060145 (Version 1)
Quarter: 2014Q2

REPORT INFORMATION
  Report Type: Spontaneous
  Country: AU (occurrence: AU)
  Receive Date: 20140404
  Receipt Date: 20140404
  Transmission Date: 20141212
  Serious: Yes (Other)
  Sender: FDA-Public Use
  Company Number: CHPA2014AU004696

PATIENT
  Age: 26 Year
  Sex: Male

DRUGS (1)
  1. IBUPROFEN [Suspect]
     Indication: BACK PAIN
     Dosage: UNK

REACTIONS (10)
  - Duodenal stenosis [Unknown]
  - Dehydration [Unknown]
  - Hypovolaemia [Unknown]
  - Malnutrition [Unknown]
  - Weight decreased [Unknown]
  - Duodenal ulcer [Unknown]
  - Iron deficiency anaemia [Unknown]
  - Food intolerance [Unknown]
  - Nausea [Unknown]
  - Vomiting [Unknown]
